FAERS Safety Report 18562787 (Version 1)
Quarter: 2020Q4

REPORT INFORMATION
  Report Type: Spontaneous
  Country: FR (occurrence: FR)
  Receive Date: 20201201
  Receipt Date: 20201201
  Transmission Date: 20210114
  Serious: Yes (Hospitalization)
  Sender: FDA-Public Use
  Company Number: FR-BRISTOL-MYERS SQUIBB COMPANY-BMS-2020-098787

PATIENT
  Age: 82 Year
  Sex: Male

DRUGS (3)
  1. ROCEPHINE [Interacting]
     Active Substance: CEFTRIAXONE SODIUM
     Indication: CORONAVIRUS INFECTION
     Dosage: 1 GRAM, 1 DAY
     Route: 042
     Dates: start: 20200325, end: 20200402
  2. COUMADINE [Suspect]
     Active Substance: WARFARIN SODIUM
     Indication: ATRIAL FIBRILLATION
     Dosage: 6 MILLIGRAM, 1 DAY
     Route: 048
     Dates: start: 20200326, end: 20200330
  3. ROVAMYCINE [SPIRAMYCIN ADEPATE] [Interacting]
     Active Substance: SPIRAMYCIN ADIPATE
     Indication: CORONAVIRUS INFECTION
     Dosage: 4.5 MEGA-INTERNATIONAL UNIT, 1 DAY
     Route: 042
     Dates: start: 20200325, end: 20200403

REACTIONS (3)
  - International normalised ratio increased [Recovered/Resolved]
  - Anaemia [Recovering/Resolving]
  - Labelled drug-drug interaction medication error [Recovered/Resolved]

NARRATIVE: CASE EVENT DATE: 20200331
